FAERS Safety Report 7611321-3 (Version None)
Quarter: 2011Q3

REPORT INFORMATION
  Report Type: 
  Country: None (occurrence: None)
  Receive Date: 20110715
  Receipt Date: 20110617
  Transmission Date: 20111222
  Serious: No
  Sender: FDA-Public Use
  Company Number: US-BAYER-2011-053182

PATIENT
  Age: 67 Year
  Sex: Female
  Weight: 57 kg

DRUGS (2)
  1. ALEVE (CAPLET) [Suspect]
     Dosage: 2 DF, ONCE
     Route: 048
     Dates: start: 20110611, end: 20110611
  2. LEVOXYL [Concomitant]

REACTIONS (4)
  - PRURITUS GENERALISED [None]
  - VOMITING [None]
  - TONGUE PRURITUS [None]
  - EYE PRURITUS [None]
